FAERS Safety Report 5504629-9 (Version None)
Quarter: 2007Q4

REPORT INFORMATION
  Report Type: 
  Country: None (occurrence: None)
  Receive Date: 20071101
  Receipt Date: 20071005
  Transmission Date: 20080405
  Serious: No
  Sender: FDA-Public Use
  Company Number: US-BOEHRINGER INGELHEIM PHARMACEUTICALS, INC.-2007-BP-22801BP

PATIENT
  Sex: Male
  Weight: 77 kg

DRUGS (3)
  1. FLOMAX [Suspect]
     Indication: BENIGN PROSTATIC HYPERPLASIA
     Route: 048
     Dates: start: 19990101
  2. VITAMIN [Concomitant]
     Route: 048
  3. TIMOLOL MALEATE [Concomitant]

REACTIONS (3)
  - BONE MARROW FAILURE [None]
  - LIBIDO DECREASED [None]
  - SEMEN VOLUME DECREASED [None]
